FAERS Safety Report 21470694 (Version 2)
Quarter: 2022Q4

REPORT INFORMATION
  Report Type: Spontaneous
  Country: KR (occurrence: KR)
  Receive Date: 20221018
  Receipt Date: 20221027
  Transmission Date: 20230112
  Serious: No
  Sender: FDA-Public Use
  Company Number: KR-BAUSCH-BL-2022-023677

PATIENT
  Sex: Female

DRUGS (1)
  1. LOPROX [Suspect]
     Active Substance: CICLOPIROX\CICLOPIROX OLAMINE
     Indication: Onychomycosis
     Dosage: SANDING 2 TO 3 TIMES IN WEEK
     Route: 061
     Dates: start: 2022

REACTIONS (2)
  - Nail injury [Unknown]
  - Condition aggravated [Unknown]

NARRATIVE: CASE EVENT DATE: 20220101
